FAERS Safety Report 7005389-5 (Version None)
Quarter: 2010Q3

REPORT INFORMATION
  Report Type: 
  Country: None (occurrence: None)
  Receive Date: 20100921
  Receipt Date: 20100911
  Transmission Date: 20110219
  Serious: Yes (Other)
  Sender: FDA-Public Use
  Company Number: US-NAPPMUNDI-USA-2010-0046822

PATIENT
  Sex: Male

DRUGS (2)
  1. OXYCONTIN [Suspect]
     Indication: PAIN
     Dosage: 320 MG, DAILY
     Dates: start: 19980101
  2. OXYCONTIN [Suspect]
     Dosage: 10 MG, UNK

REACTIONS (4)
  - DISABILITY [None]
  - HEPATITIS C [None]
  - THROMBOSIS [None]
  - VEIN DISORDER [None]
